FAERS Safety Report 9362022 (Version 1)
Quarter: 2013Q2

REPORT INFORMATION
  Report Type: Spontaneous
  Country: JP (occurrence: JP)
  Receive Date: 20130621
  Receipt Date: 20130621
  Transmission Date: 20140414
  Serious: Yes (Other)
  Sender: FDA-Public Use
  Company Number: CHPA2013JP010163

PATIENT
  Sex: Male

DRUGS (2)
  1. PURSENNID [Suspect]
     Dosage: UNK, EVERY 3 DAYS (AROUND 2300 HRS)
     Route: 048
     Dates: start: 201301
  2. MAGMITT [Concomitant]
     Dosage: 165 MG, UNK
     Route: 048

REACTIONS (2)
  - Eye haemorrhage [Unknown]
  - Conjunctival hyperaemia [Recovering/Resolving]
